FAERS Safety Report 7580723-6 (Version None)
Quarter: 2011Q2

REPORT INFORMATION
  Report Type: 
  Country: None (occurrence: None)
  Receive Date: 20110620
  Receipt Date: 20110609
  Transmission Date: 20111010
  Serious: Yes (Hospitalization)
  Sender: FDA-Public Use
  Company Number: 2011028871

PATIENT
  Age: 53 Year
  Sex: Female
  Weight: 83.4619 kg

DRUGS (17)
  1. ZOFRAN [Concomitant]
  2. FLORINEF (FLUDROCORTISONE ACETATE) ODIUM) [Concomitant]
  3. SYNTHROID [Concomitant]
  4. HIZENTRA [Suspect]
  5. LIDODERM [Concomitant]
  6. VICODIN [Concomitant]
  7. LORATADINE [Concomitant]
  8. RESTASIS [Concomitant]
  9. HIZENTRA [Suspect]
     Indication: IMMUNODEFICIENCY COMMON VARIABLE
     Dosage: SEE IMAGE
     Route: 058
     Dates: start: 20101218
  10. CLONAZEPAM [Concomitant]
  11. VIVELLE-DOT [Concomitant]
  12. OXYCONTIN [Concomitant]
  13. ESTRING [Concomitant]
  14. VITAMIN D [Concomitant]
  15. LOTEMAX [Concomitant]
  16. PROBIOTIC (LACTOBACILLUS ACIDOPHILUS) [Concomitant]
  17. LEXAPRO [Concomitant]

REACTIONS (7)
  - INTERSTITIAL LUNG DISEASE [None]
  - CHILLS [None]
  - PRODUCTIVE COUGH [None]
  - MALAISE [None]
  - MUSCULOSKELETAL CHEST PAIN [None]
  - PAIN [None]
  - DYSPNOEA [None]
